FAERS Safety Report 12188028 (Version 2)
Quarter: 2016Q2

REPORT INFORMATION
  Report Type: Report from Study
  Country: GB (occurrence: GB)
  Receive Date: 20160317
  Receipt Date: 20160511
  Transmission Date: 20160815
  Serious: Yes (Death)
  Sender: FDA-Public Use
  Company Number: GB-ABBVIE-16K-167-1583780-00

PATIENT
  Age: 66 Year
  Sex: Female

DRUGS (2)
  1. AZATHIOPRINE. [Concomitant]
     Active Substance: AZATHIOPRINE
     Indication: RHEUMATOID ARTHRITIS
     Dates: start: 20100813
  2. HUMIRA [Suspect]
     Active Substance: ADALIMUMAB
     Indication: RHEUMATOID ARTHRITIS
     Route: 058
     Dates: start: 20070415, end: 20100518

REACTIONS (2)
  - Interstitial lung disease [Fatal]
  - Pneumonia [Fatal]

NARRATIVE: CASE EVENT DATE: 20140521
